FAERS Safety Report 7717622-2 (Version None)
Quarter: 2011Q3

REPORT INFORMATION
  Report Type: 
  Country: None (occurrence: None)
  Receive Date: 20110830
  Receipt Date: 20110830
  Transmission Date: 20111222
  Serious: Yes (Death, Life-Threatening, Hospitalization, Disabling, Congenital Anomaly, Other)
  Sender: FDA-Public Use
  Company Number: None

PATIENT
  Age: 58 Year
  Sex: Female
  Weight: 7302.8 kg

DRUGS (2)
  1. ZIACAM NASAL SPRAY [Suspect]
     Indication: NASOPHARYNGITIS
     Dates: start: 20110429, end: 20110430
  2. ZIACAM NASAL SWAB [Concomitant]
     Dates: start: 20110429, end: 20110429

REACTIONS (1)
  - ANOSMIA [None]
